FAERS Safety Report 6762219-4 (Version None)
Quarter: 2010Q2

REPORT INFORMATION
  Report Type: 
  Country: None (occurrence: None)
  Receive Date: 20100609
  Receipt Date: 20100526
  Transmission Date: 20101027
  Serious: Yes (Disabling)
  Sender: FDA-Public Use
  Company Number: PHHY2010US26149

PATIENT
  Sex: Female
  Weight: 77.551 kg

DRUGS (8)
  1. RECLAST [Suspect]
     Indication: OSTEOPENIA
     Dosage: 5 MG, ONCE/SINGLE
     Route: 042
     Dates: start: 20100419
  2. RAMIPRIL [Concomitant]
     Dosage: 25 MG, QD
     Route: 048
  3. FUROSEMIDE [Concomitant]
     Dosage: 20 MG, QD
     Route: 048
  4. AMIODARONE HYDROCHLORIDE [Concomitant]
     Dosage: 200 MG, QD
     Route: 048
  5. COREG [Concomitant]
     Dosage: 3.125 MG, QD
     Route: 048
  6. FISH OIL [Concomitant]
  7. CALCIUM CARBONATE [Concomitant]
  8. VITAMIN TAB [Concomitant]

REACTIONS (3)
  - ARTHRALGIA [None]
  - BONE PAIN [None]
  - PAIN [None]
